FAERS Safety Report 19364831 (Version 2)
Quarter: 2021Q2

REPORT INFORMATION
  Report Type: Report from Study
  Country: MX (occurrence: MX)
  Receive Date: 20210602
  Receipt Date: 20210615
  Transmission Date: 20210717
  Serious: No
  Sender: FDA-Public Use
  Company Number: MX-BAYER-2021-085694

PATIENT
  Age: 70 Year
  Sex: Female

DRUGS (6)
  1. NEXAVAR [Suspect]
     Active Substance: SORAFENIB
     Indication: HEPATOCELLULAR CARCINOMA
     Dosage: 600 MG DAILY (2 TABLETS IN THE MORNING AND ONE IN THE EVENING)
     Route: 048
     Dates: start: 20210416, end: 20210426
  2. COVID?19 VACCINE MRNA [Concomitant]
     Dosage: UNK
     Dates: start: 20210415, end: 20210415
  3. TOLTERODINE [Concomitant]
     Active Substance: TOLTERODINE
     Indication: URINARY INCONTINENCE
     Dosage: 1 TABLET BY MOUTH EVERY 12 HOURS
     Dates: start: 2015
  4. NEXAVAR [Suspect]
     Active Substance: SORAFENIB
     Indication: HEPATOCELLULAR CARCINOMA
     Dosage: 600 MG DAILY (2 TABLETS IN THE MORNING AND ONE IN THE EVENING)
     Route: 048
     Dates: start: 20180620, end: 20210414
  5. LOSARTAN. [Concomitant]
     Active Substance: LOSARTAN
     Indication: HYPERTENSION
     Dosage: 1 TABLET BY MOUTH EVERY 12 HOURS  (15 YEARS WITH DX, BUT PATIENT PREVIOUSLY TOOK ANOTHER MEDICINE)
     Dates: start: 2010
  6. METOPROLOL. [Concomitant]
     Active Substance: METOPROLOL
     Indication: HYPERTENSION
     Dosage: 1 TABLET BY MOUTH EVERY 24 HOURS
     Dates: start: 2012

REACTIONS (5)
  - Diarrhoea [Recovering/Resolving]
  - Pain in extremity [Not Recovered/Not Resolved]
  - Hyperkeratosis [Recovering/Resolving]
  - Alopecia [Not Recovered/Not Resolved]
  - Off label use [None]

NARRATIVE: CASE EVENT DATE: 20180620
